FAERS Safety Report 22939941 (Version 3)
Quarter: 2023Q4

REPORT INFORMATION
  Report Type: Spontaneous
  Country: US (occurrence: US)
  Receive Date: 20230913
  Receipt Date: 20231211
  Transmission Date: 20240110
  Serious: Yes (Other)
  Sender: FDA-Public Use
  Company Number: US-JNJFOC-20230909317

PATIENT
  Sex: Male

DRUGS (3)
  1. TYLENOL EXTRA STRENGTH [Suspect]
     Active Substance: ACETAMINOPHEN
     Indication: Back pain
     Dosage: BOTTLE OF 24 CAPLETS. PATIENT^S MOTHER USED TYLENOL EXTRA STRENGTH TABLET IN HER FIRST TRIMESTER OF
     Route: 064
     Dates: start: 200703, end: 200704
  2. TYLENOL EXTRA STRENGTH [Suspect]
     Active Substance: ACETAMINOPHEN
     Indication: Pain in extremity
     Dosage: BOTTLE OF 225 TABLETS. PATIENT^S MOTHER USED TYLENOL EXTRA STRENGTH TABLET IN HER SECOND AND THIRD T
     Route: 064
     Dates: start: 200705, end: 200708
  3. TYLENOL EXTRA STRENGTH [Suspect]
     Active Substance: ACETAMINOPHEN
     Indication: Pain

REACTIONS (3)
  - Autism spectrum disorder [Unknown]
  - Foetal exposure during pregnancy [Unknown]
  - Attention deficit hyperactivity disorder [Unknown]

NARRATIVE: CASE EVENT DATE: 20070101
